FAERS Safety Report 10985810 (Version 1)
Quarter: 2015Q1

REPORT INFORMATION
  Report Type: Spontaneous
  Country: US (occurrence: None)
  Receive Date: 20150309
  Receipt Date: 20150309
  Transmission Date: 20150721
  Serious: Yes (Other)
  Sender: FDA-Public Use
  Company Number: 1353549

PATIENT
  Age: 73 Year
  Sex: Female
  Weight: 62.6 kg

DRUGS (6)
  1. COSOPT (DORZOLAMIDE HYDROCHLORIDE, TIMOLOL MALEATE) [Concomitant]
  2. HYZAAR (HYDROCHLOROTHIAZIDE, LOSARTAN POTASSIUM) [Concomitant]
  3. SYSTANE (POLYETHYLENE GLYCOL, PROPYLENE GLYCOL) [Concomitant]
  4. BONIVA [Suspect]
     Active Substance: IBANDRONATE SODIUM
     Indication: OSTEOPOROSIS
     Dosage: 3 MG, 1 IN 3 M, INTRAVENOUS
     Route: 042
     Dates: start: 201307, end: 201311
  5. CITRACAL (CALCIUM CITRATE) [Concomitant]
     Active Substance: CALCIUM CITRATE
  6. ZETIA [Suspect]
     Active Substance: EZETIMIBE
     Indication: HYPERLIPIDAEMIA
     Dosage: 10 MG 1 IN 1D ORAL
     Route: 048
     Dates: start: 201304, end: 201310

REACTIONS (4)
  - Myalgia [None]
  - Vomiting [None]
  - Abdominal discomfort [None]
  - Pain in extremity [None]

NARRATIVE: CASE EVENT DATE: 201311
